FAERS Safety Report 14624266 (Version 1)
Quarter: 2018Q1

REPORT INFORMATION
  Report Type: Spontaneous
  Country: IR (occurrence: IR)
  Receive Date: 20180312
  Receipt Date: 20180312
  Transmission Date: 20180509
  Serious: Yes (Life-Threatening, Hospitalization)
  Sender: FDA-Public Use
  Company Number: IR-SUN PHARMACEUTICAL INDUSTRIES LTD-2018R1-165639

PATIENT
  Age: 48 Year
  Sex: Male

DRUGS (1)
  1. BACLOFEN. [Suspect]
     Active Substance: BACLOFEN
     Indication: BACK PAIN
     Dosage: UNK
     Route: 065

REACTIONS (5)
  - Hypertension [Unknown]
  - Toxicity to various agents [Unknown]
  - Toxic encephalopathy [Recovered/Resolved]
  - Azotaemia [Unknown]
  - Anaemia [Unknown]
